FAERS Safety Report 24238025 (Version 1)
Quarter: 2024Q3

REPORT INFORMATION
  Report Type: Spontaneous
  Country: US (occurrence: None)
  Receive Date: 20240821
  Receipt Date: 20240821
  Transmission Date: 20241017
  Serious: No
  Sender: Public
  Company Number: None

PATIENT
  Age: 41 Year
  Sex: Female
  Weight: 99.9 kg

DRUGS (4)
  1. WEGOVY [Suspect]
     Active Substance: SEMAGLUTIDE
     Indication: Obesity
     Dates: start: 20240819, end: 20240819
  2. SAFFRON [Concomitant]
     Active Substance: SAFFRON
  3. Papaya enzyme [Concomitant]
  4. CASTOR OIL [Concomitant]

REACTIONS (4)
  - Nausea [None]
  - Vomiting [None]
  - Asthenia [None]
  - Hypophagia [None]

NARRATIVE: CASE EVENT DATE: 20240819
